FAERS Safety Report 17893068 (Version 1)
Quarter: 2020Q2

REPORT INFORMATION
  Report Type: Spontaneous
  Country: FR (occurrence: FR)
  Receive Date: 20200613
  Receipt Date: 20200613
  Transmission Date: 20200714
  Serious: Yes (Other)
  Sender: FDA-Public Use
  Company Number: FR-CANTON LABORATORIES, LLC-2085779

PATIENT
  Age: 53 Year
  Sex: Female
  Weight: 77 kg

DRUGS (13)
  1. LEXOMIL ROCHE COMPRIME BAGUETTE [Suspect]
     Active Substance: BROMAZEPAM
     Route: 048
     Dates: start: 20170908
  2. ENBREL [Suspect]
     Active Substance: ETANERCEPT
     Route: 058
     Dates: start: 20180621
  3. ARAVA [Suspect]
     Active Substance: LEFLUNOMIDE
     Route: 048
     Dates: start: 20180212
  4. DOLIPRANE [Suspect]
     Active Substance: ACETAMINOPHEN
     Route: 048
     Dates: start: 20170504
  5. IZALGI [Suspect]
     Active Substance: ACETAMINOPHEN\OPIUM
     Route: 048
     Dates: start: 20170901
  6. CYMBALTA [Suspect]
     Active Substance: DULOXETINE HYDROCHLORIDE
     Route: 048
     Dates: start: 20180202
  7. METHOTREXATE (METHOTREXATE SODIUM) [Suspect]
     Active Substance: METHOTREXATE SODIUM
     Route: 048
     Dates: start: 20171109
  8. PROZAC [Suspect]
     Active Substance: FLUOXETINE HYDROCHLORIDE
     Route: 048
     Dates: start: 20170316
  9. IMOVANE [Suspect]
     Active Substance: ZOPICLONE
     Route: 048
     Dates: start: 20170301
  10. PLAQUENIL [Suspect]
     Active Substance: HYDROXYCHLOROQUINE SULFATE
     Route: 048
     Dates: start: 20170901
  11. MOPRAL [Suspect]
     Active Substance: OMEPRAZOLE
     Route: 048
     Dates: start: 20170701
  12. NAPROSYN [Suspect]
     Active Substance: NAPROXEN
     Indication: PSORIATIC ARTHROPATHY
     Route: 048
     Dates: start: 20170802
  13. VITAMIN D3 [Suspect]
     Active Substance: CHOLECALCIFEROL
     Dates: start: 20170302

REACTIONS (2)
  - Chronic obstructive pulmonary disease [Unknown]
  - Emphysema [Unknown]

NARRATIVE: CASE EVENT DATE: 20190403
